FAERS Safety Report 16170130 (Version 2)
Quarter: 2019Q2

REPORT INFORMATION
  Report Type: Spontaneous
  Country: DE (occurrence: DE)
  Receive Date: 20190408
  Receipt Date: 20190503
  Transmission Date: 20190711
  Serious: Yes (Other)
  Sender: FDA-Public Use
  Company Number: DE-PFIZER INC-2019143631

PATIENT
  Sex: Male

DRUGS (8)
  1. BICALUTAMID [Concomitant]
     Active Substance: BICALUTAMIDE
     Dosage: 50 1X1, UNKNOWN FREQ.
     Dates: start: 201712
  2. NOVALGIN (METAMIZOLE SODIUM) [Concomitant]
     Active Substance: METAMIZOLE SODIUM
     Dosage: UNK
  3. XTANDI [Suspect]
     Active Substance: ENZALUTAMIDE
     Dosage: 40 MG, UNK
  4. OXYCODON [Concomitant]
     Active Substance: OXYCODONE
     Dosage: 30 MG, 2X/DAY (EVERY 12 HOURS)
  5. XTANDI [Suspect]
     Active Substance: ENZALUTAMIDE
     Dosage: 40 MG, UNK
  6. TRENANTONE [Concomitant]
     Active Substance: LEUPROLIDE ACETATE
     Dosage: UNK UNK, EVERY 3 MONTHS
  7. METHOTREXATE SODIUM. [Suspect]
     Active Substance: METHOTREXATE SODIUM
     Indication: RHEUMATIC DISORDER
     Dosage: UNK
  8. MORPHINE [Concomitant]
     Active Substance: MORPHINE
     Dosage: UNK

REACTIONS (16)
  - Oesophageal disorder [Unknown]
  - Erythema [Recovering/Resolving]
  - Nausea [Unknown]
  - Pyrexia [Unknown]
  - Weight decreased [Unknown]
  - Pain [Unknown]
  - Fear of death [Unknown]
  - Generalised erythema [Recovering/Resolving]
  - Product use complaint [Unknown]
  - Suffocation feeling [Unknown]
  - Vomiting [Unknown]
  - Hot flush [Unknown]
  - Rash [Unknown]
  - Decreased immune responsiveness [Unknown]
  - Hyperhidrosis [Unknown]
  - Blood pressure abnormal [Unknown]
